FAERS Safety Report 12672214 (Version 3)
Quarter: 2019Q4

REPORT INFORMATION
  Report Type: Report from Study
  Country: CA (occurrence: CA)
  Receive Date: 20160822
  Receipt Date: 20191203
  Transmission Date: 20200122
  Serious: Yes (Other)
  Sender: FDA-Public Use
  Company Number: PHHY2012CA122583

PATIENT
  Age: 43 Year
  Sex: Male

DRUGS (1)
  1. GILENYA [Suspect]
     Active Substance: FINGOLIMOD HYDROCHLORIDE
     Indication: RELAPSING-REMITTING MULTIPLE SCLEROSIS
     Dosage: 0.5 MG, QD
     Route: 048
     Dates: start: 20121203

REACTIONS (4)
  - Headache [Recovering/Resolving]
  - Pruritus [Unknown]
  - Expanded disability status scale score increased [Recovering/Resolving]
  - Hair texture abnormal [Unknown]

NARRATIVE: CASE EVENT DATE: 20121205
